FAERS Safety Report 6753495-2 (Version None)
Quarter: 2010Q2

REPORT INFORMATION
  Report Type: 
  Country: None (occurrence: None)
  Receive Date: 20100520
  Receipt Date: 20090916
  Transmission Date: 20101027
  Serious: Yes (Other)
  Sender: FDA-Public Use
  Company Number: 2009269985

PATIENT
  Age: 51 Year
  Sex: Female
  Weight: 122 kg

DRUGS (6)
  1. PROVERA [Suspect]
     Indication: HORMONE REPLACEMENT THERAPY
     Dosage: 2.5 MG, ORAL, 0.5 MG
     Route: 048
     Dates: start: 19930101, end: 20000301
  2. PROVERA [Suspect]
     Indication: HORMONE REPLACEMENT THERAPY
     Dosage: 2.5 MG, ORAL, 0.5 MG
     Route: 048
     Dates: start: 19940701, end: 20000301
  3. MEDROXYPROGESTERONE [Suspect]
     Indication: HORMONE REPLACEMENT THERAPY
     Dosage: 2.5 MG
     Dates: start: 19980101, end: 20000101
  4. MEDROXYPROGESTERONE [Suspect]
     Indication: HORMONE REPLACEMENT THERAPY
     Dosage: 2.5 MG
     Dates: start: 19980101, end: 20000101
  5. PREMARIN [Suspect]
     Indication: HORMONE REPLACEMENT THERAPY
  6. ESTRADERM [Suspect]
     Indication: HORMONE REPLACEMENT THERAPY
     Dosage: 0.1 MG, TRANSDERMAL
     Route: 062
     Dates: start: 19940701, end: 20000301

REACTIONS (1)
  - BREAST CANCER FEMALE [None]
